FAERS Safety Report 6169820-X (Version None)
Quarter: 2009Q2

REPORT INFORMATION
  Report Type: 
  Country: None (occurrence: None)
  Receive Date: 20090424
  Receipt Date: 20090407
  Transmission Date: 20091009
  Serious: Yes (Hospitalization)
  Sender: FDA-Public Use
  Company Number: 6050444

PATIENT
  Age: 60 Year
  Sex: Female

DRUGS (8)
  1. LEVOTHYROXINE SODIUM [Suspect]
     Indication: DRUG USE FOR UNKNOWN INDICATION
     Dosage: ORAL
     Route: 048
  2. MEDIATOR (150 MG, TABLET) (BENFLUOREX HYDROCHLORIDE) [Suspect]
     Indication: DIABETES MELLITUS
     Dosage: 3 DOSAGE FORMS (3 DOSAGE FORMS, 1 D) - ORAL
     Route: 048
     Dates: start: 19980101, end: 20080101
  3. ART 50 (50 MG, CAPSULE) (DIACEREIN) [Suspect]
     Indication: DRUG USE FOR UNKNOWN INDICATION
     Dosage: ORAL
     Route: 048
  4. NOCTRAN (10 MG, TABLET) (ACEPROMAZINE, ACEPROMETAZINE, CLORAZEPATE DIP [Suspect]
     Indication: DRUG USE FOR UNKNOWN INDICATION
     Dosage: ORAL
     Route: 048
  5. AMITRIPTYLINE HYDROCHLORIDE [Suspect]
     Indication: DRUG USE FOR UNKNOWN INDICATION
  6. NEULEPTIL (PERICIAZINE) [Suspect]
     Indication: DRUG USE FOR UNKNOWN INDICATION
  7. ATORVASTATIN CALCIUM [Suspect]
     Indication: DRUG USE FOR UNKNOWN INDICATION
  8. PROZAC [Suspect]
     Indication: DEPRESSION

REACTIONS (6)
  - AORTIC VALVE INCOMPETENCE [None]
  - MITRAL VALVE DISEASE [None]
  - MITRAL VALVE INCOMPETENCE [None]
  - MITRAL VALVE STENOSIS [None]
  - PLEURAL EFFUSION [None]
  - PULMONARY ARTERIAL PRESSURE INCREASED [None]
